FAERS Safety Report 7711561-9 (Version None)
Quarter: 2011Q3

REPORT INFORMATION
  Report Type: 
  Country: None (occurrence: None)
  Receive Date: 20110822
  Receipt Date: 20110816
  Transmission Date: 20111222
  Serious: Yes (Hospitalization)
  Sender: FDA-Public Use
  Company Number: 2010SP052257

PATIENT
  Age: 48 Year
  Sex: Female
  Weight: 63 kg

DRUGS (19)
  1. TEMOZOLOMIDE [Suspect]
     Indication: OVARIAN CANCER
     Dosage: 150 MG/M2;QD;PO 200 MG/MD;QD;PO
     Route: 048
     Dates: start: 20100810, end: 20100814
  2. TEMOZOLOMIDE [Suspect]
     Indication: OVARIAN CANCER
     Dosage: 150 MG/M2;QD;PO 200 MG/MD;QD;PO
     Route: 048
     Dates: start: 20100907, end: 20100911
  3. DOMPERIDONE [Concomitant]
  4. AMITRIPTYLINE HCL [Concomitant]
  5. HYOSCINE HBR HYT [Concomitant]
  6. ABT-888 (INVESTIGATIONAL DRUG) [Suspect]
     Indication: OVARIAN CANCER
     Dosage: 40 MG;BID;PO
     Route: 048
     Dates: start: 20100810, end: 20100912
  7. POLYETHYL. GLYC. W/POTAS. CHLOR./SOD. BICARB. [Concomitant]
  8. IBUPROFEN [Concomitant]
  9. GLYCEROL 2.6% [Concomitant]
  10. ACETAMINOPHEN [Concomitant]
  11. OMEPRAZOLE [Concomitant]
  12. DEXAMETHASONE [Concomitant]
  13. SENNA ALEXANDRIA [Concomitant]
  14. GAVISCON [Concomitant]
  15. ENEMA [Concomitant]
  16. ONDANSETRON [Concomitant]
  17. CYCLIZINE [Concomitant]
  18. ZOPICLONE [Concomitant]
  19. MAGNESIUM SULFATE [Concomitant]

REACTIONS (11)
  - NEUTROPHIL COUNT DECREASED [None]
  - TREATMENT NONCOMPLIANCE [None]
  - FATIGUE [None]
  - HYPOKALAEMIA [None]
  - PALPITATIONS [None]
  - HYPONATRAEMIA [None]
  - VOMITING [None]
  - WHITE BLOOD CELL COUNT DECREASED [None]
  - NAUSEA [None]
  - DECREASED APPETITE [None]
  - DYSPNOEA [None]
